FAERS Safety Report 15929654 (Version 1)
Quarter: 2019Q1

REPORT INFORMATION
  Report Type: Spontaneous
  Country: JP (occurrence: JP)
  Receive Date: 20190206
  Receipt Date: 20190206
  Transmission Date: 20190417
  Serious: Yes (Hospitalization)
  Sender: FDA-Public Use
  Company Number: JP-BIOMARINAP-JP-2019-121796

PATIENT
  Age: 8 Year
  Sex: Male
  Weight: 25.8 kg

DRUGS (1)
  1. BRINEURA [Suspect]
     Active Substance: CERLIPONASE ALFA
     Indication: NEURONAL CEROID LIPOFUSCINOSIS
     Dosage: 300 MILLIGRAM, QOW
     Route: 020
     Dates: start: 20181221

REACTIONS (2)
  - Gaze palsy [Recovering/Resolving]
  - Clonic convulsion [Recovering/Resolving]

NARRATIVE: CASE EVENT DATE: 20190201
